APPROVED DRUG PRODUCT: CEFOTETAN AND DEXTROSE IN DUPLEX CONTAINER
Active Ingredient: CEFOTETAN DISODIUM
Strength: EQ 1GM BASE/VIAL
Dosage Form/Route: INJECTABLE;INJECTION
Application: N065430 | Product #001
Applicant: B BRAUN MEDICAL INC
Approved: Aug 9, 2007 | RLD: Yes | RS: No | Type: DISCN